FAERS Safety Report 17103605 (Version 3)
Quarter: 2020Q2

REPORT INFORMATION
  Report Type: Spontaneous
  Country: US (occurrence: US)
  Receive Date: 20191203
  Receipt Date: 20200402
  Transmission Date: 20200713
  Serious: Yes (Hospitalization, Other)
  Sender: FDA-Public Use
  Company Number: US-ROCHE-2481343

PATIENT
  Sex: Male
  Weight: 71.73 kg

DRUGS (10)
  1. DORZOLAMIDE [Concomitant]
     Active Substance: DORZOLAMIDE
     Dosage: IN RIGHT EYE OFF FOR 6 MONTHS
     Route: 047
  2. LUCENTIS [Suspect]
     Active Substance: RANIBIZUMAB
     Indication: NEOVASCULAR AGE-RELATED MACULAR DEGENERATION
     Dosage: STARTED 5 YEARS AGO LAST DOSE 3 YEARS AGO
     Route: 050
     Dates: start: 2014, end: 2016
  3. LUCENTIS [Suspect]
     Active Substance: RANIBIZUMAB
     Route: 050
     Dates: end: 201611
  4. BRIMONIDINE [Concomitant]
     Active Substance: BRIMONIDINE TARTRATE
     Dosage: ONGOING : YES
     Route: 047
  5. DORZOLAMIDE [Concomitant]
     Active Substance: DORZOLAMIDE
     Route: 047
  6. SIMBRINZA [Concomitant]
     Active Substance: BRIMONIDINE TARTRATE\BRINZOLAMIDE
     Route: 047
     Dates: start: 2020
  7. ROCKLATAN [Concomitant]
     Active Substance: LATANOPROST\NETARSUDIL MESYLATE
     Dosage: STARTED 3 YEARS AGO IN RIGHT EYE
     Route: 047
  8. LUCENTIS [Suspect]
     Active Substance: RANIBIZUMAB
     Route: 050
     Dates: start: 2015, end: 2017
  9. BRIMONIDINE [Concomitant]
     Active Substance: BRIMONIDINE TARTRATE
     Dosage: IN RIGHT EYE STOPPED FOR 6 MONTHS
     Route: 047
  10. TIMOLOL MALEATE. [Concomitant]
     Active Substance: TIMOLOL MALEATE
     Dosage: ONCE EVERY MORNING
     Route: 047

REACTIONS (19)
  - Pain [Recovered/Resolved]
  - Eye pain [Unknown]
  - Acne [Not Recovered/Not Resolved]
  - Blindness unilateral [Not Recovered/Not Resolved]
  - Gastric infection [Recovered/Resolved]
  - Vitreous floaters [Not Recovered/Not Resolved]
  - Eye swelling [Not Recovered/Not Resolved]
  - Cardiac valve disease [Recovered/Resolved]
  - Eye pruritus [Recovering/Resolving]
  - Rash [Recovering/Resolving]
  - Intentional product misuse [Unknown]
  - Diarrhoea [Recovered/Resolved]
  - Visual impairment [Not Recovered/Not Resolved]
  - Dry age-related macular degeneration [Not Recovered/Not Resolved]
  - Infection [Not Recovered/Not Resolved]
  - Amnesia [Unknown]
  - Reading disorder [Not Recovered/Not Resolved]
  - Off label use [Unknown]
  - Ocular hyperaemia [Not Recovered/Not Resolved]

NARRATIVE: CASE EVENT DATE: 2016
